FAERS Safety Report 6698173-3 (Version None)
Quarter: 2010Q2

REPORT INFORMATION
  Report Type: 
  Country: None (occurrence: None)
  Receive Date: 20100427
  Receipt Date: 20100423
  Transmission Date: 20101027
  Serious: Yes (Other)
  Sender: FDA-Public Use
  Company Number: GB-ROXANE LABORATORIES, INC.-2010-RO-00459RO

PATIENT
  Age: 33 Year
  Sex: Female

DRUGS (4)
  1. LEVETIRACETAM [Suspect]
     Indication: COMPLEX PARTIAL SEIZURES
     Dosage: 1 G
  2. LEVOTHYROXINE [Suspect]
     Indication: HYPOPITUITARISM
     Dosage: 100 MCG
  3. TOPIRAMATE [Concomitant]
     Indication: COMPLEX PARTIAL SEIZURES
     Dosage: 100 MG
  4. SODIUM VALPROATE [Concomitant]
     Indication: COMPLEX PARTIAL SEIZURES
     Dosage: 1 G

REACTIONS (4)
  - DRUG INEFFECTIVE [None]
  - FALL [None]
  - HALLUCINATION, TACTILE [None]
  - SOMATIC DELUSION [None]
